FAERS Safety Report 6458723-9 (Version None)
Quarter: 2009Q4

REPORT INFORMATION
  Report Type: 
  Country: None (occurrence: None)
  Receive Date: 20091127
  Receipt Date: 20091116
  Transmission Date: 20100525
  Serious: Yes (Life-Threatening)
  Sender: FDA-Public Use
  Company Number: FR-ROCHE-669209

PATIENT
  Age: 63 Year
  Sex: Female

DRUGS (15)
  1. CELLCEPT [Suspect]
     Route: 065
     Dates: start: 20030820, end: 20081101
  2. PROGRAF [Suspect]
     Route: 065
     Dates: start: 20030820
  3. CORTANCYL [Suspect]
     Route: 065
     Dates: start: 20030820
  4. CORTANCYL [Suspect]
     Route: 065
     Dates: start: 20071201
  5. PRAVASTATIN [Concomitant]
     Dosage: DRUG:ELISOR 20
     Dates: start: 20040301
  6. ZITHROMAX [Concomitant]
     Dates: start: 20040301
  7. CACIT D3 [Concomitant]
     Dates: start: 20040301
  8. IMOVANE [Concomitant]
     Dosage: TAKEN IF REQUIRED
     Dates: start: 20050404, end: 20080505
  9. FOSAMAX [Concomitant]
     Dates: start: 20050608
  10. DURAGESIC-100 [Concomitant]
     Dosage: DOSE;25 ALD
     Dates: start: 20060130
  11. AERIUS [Concomitant]
     Dates: start: 20060130
  12. RHINOCORT [Concomitant]
     Dosage: DRUG:RHINACORT
     Dates: start: 20060623
  13. ACTISKENAN [Concomitant]
     Dosage: DRUG:ACTISKENAN 5
     Dates: start: 20070103
  14. KENZEN [Concomitant]
     Dates: start: 20070103
  15. VFEND [Concomitant]
     Dosage: DRUG:VFEND 200
     Dates: start: 20040302, end: 20050926

REACTIONS (7)
  - ASPERGILLOSIS [None]
  - HEPATIC NEOPLASM [None]
  - LUNG TRANSPLANT [None]
  - METASTASES TO SKIN [None]
  - NEUROENDOCRINE CARCINOMA OF THE SKIN [None]
  - SKIN CANCER [None]
  - TRANSPLANT REJECTION [None]
